FAERS Safety Report 7051922-7 (Version None)
Quarter: 2010Q4

REPORT INFORMATION
  Report Type: 
  Country: None (occurrence: None)
  Receive Date: 20101018
  Receipt Date: 20101018
  Transmission Date: 20110411
  Serious: Yes (Hospitalization, Other)
  Sender: FDA-Public Use
  Company Number: None

PATIENT
  Age: 31 Year
  Sex: Female
  Weight: 58.9676 kg

DRUGS (2)
  1. EMBEDA [Suspect]
     Indication: FIBROMYALGIA
     Dosage: 1 CAPSULE EVERY 12 HOURS PO
     Route: 048
     Dates: start: 20101011, end: 20101015
  2. OXYCONTIN [Concomitant]

REACTIONS (15)
  - CHAPPED LIPS [None]
  - CONSTIPATION [None]
  - DRUG HYPERSENSITIVITY [None]
  - DRY MOUTH [None]
  - DYSKINESIA [None]
  - HALLUCINATION [None]
  - HYPERSOMNIA [None]
  - INSOMNIA [None]
  - MOUTH ULCERATION [None]
  - MUSCLE TWITCHING [None]
  - OBSESSIVE-COMPULSIVE DISORDER [None]
  - OROPHARYNGEAL PAIN [None]
  - PHARYNGEAL OEDEMA [None]
  - PRURITUS [None]
  - TONGUE ULCERATION [None]
